FAERS Safety Report 6661657-8 (Version None)
Quarter: 2010Q1

REPORT INFORMATION
  Report Type: 
  Country: None (occurrence: None)
  Receive Date: 20100331
  Receipt Date: 20090326
  Transmission Date: 20100710
  Serious: Yes (Life-Threatening)
  Sender: FDA-Public Use
  Company Number: US-BRISTOL-MYERS SQUIBB COMPANY-14562706

PATIENT
  Age: 78 Year
  Sex: Male

DRUGS (3)
  1. ERBITUX [Suspect]
     Indication: HEAD AND NECK CANCER
     Dosage: 1 DOSAGEFORM = 740MG AT 50CC
     Dates: start: 20090310, end: 20090310
  2. RADIATION THERAPY [Suspect]
     Indication: HEAD AND NECK CANCER
  3. BENADRYL [Concomitant]
     Indication: PREMEDICATION

REACTIONS (1)
  - INFUSION RELATED REACTION [None]
